FAERS Safety Report 4878105-0 (Version None)
Quarter: 2006Q1

REPORT INFORMATION
  Report Type: 
  Country: None (occurrence: None)
  Receive Date: 20060110
  Receipt Date: 20060104
  Transmission Date: 20060701
  Serious: No
  Sender: FDA-Public Use
  Company Number: 2006-136596-NL

PATIENT
  Age: 28 Year
  Sex: Male

DRUGS (4)
  1. MIRTAZAPINE [Suspect]
     Indication: DEPRESSION
     Dosage: 45 MG ORAL
     Route: 048
     Dates: start: 20050401, end: 20051108
  2. MIRTAZAPINE [Suspect]
     Indication: SLEEP DISORDER
     Dosage: 45 MG ORAL
     Route: 048
     Dates: start: 20050401, end: 20051108
  3. MOMETASONE [Concomitant]
  4. RABEPRAZOLE SODIUM [Concomitant]

REACTIONS (2)
  - ALCOHOL USE [None]
  - SLEEP WALKING [None]
